FAERS Safety Report 10744949 (Version 1)
Quarter: 2015Q1

REPORT INFORMATION
  Report Type: Spontaneous
  Country: US (occurrence: None)
  Receive Date: 20150126
  Receipt Date: 20150126
  Transmission Date: 20150721
  Serious: Yes (Hospitalization, Disabling)
  Sender: FDA-Public Use
  Company Number: None

PATIENT
  Age: 42 Year
  Sex: Male
  Weight: 74.84 kg

DRUGS (1)
  1. AVELOX [Suspect]
     Active Substance: MOXIFLOXACIN HYDROCHLORIDE
     Indication: SINUSITIS
     Route: 048

REACTIONS (8)
  - Quality of life decreased [None]
  - Arthralgia [None]
  - Neuropathy peripheral [None]
  - Pain in extremity [None]
  - Cartilage injury [None]
  - Hip arthroplasty [None]
  - Product packaging issue [None]
  - Tendon pain [None]

NARRATIVE: CASE EVENT DATE: 20140621
